FAERS Safety Report 8697536 (Version 5)
Quarter: 2014Q2

REPORT INFORMATION
  Report Type: Spontaneous
  Country: JP (occurrence: JP)
  Receive Date: 20120801
  Receipt Date: 20140516
  Transmission Date: 20141212
  Serious: Yes (Life-Threatening, Hospitalization, Other)
  Sender: FDA-Public Use
  Company Number: JP-BRISTOL-MYERS SQUIBB COMPANY-16815730

PATIENT
  Sex: Female
  Weight: 53 kg

DRUGS (11)
  1. ORENCIA FOR INJ 250 MG/VIAL [Suspect]
     Indication: RHEUMATOID ARTHRITIS
     Dosage: INTERRUPTED ON:11-NOV-2011
     Route: 041
     Dates: start: 20110215, end: 20111111
  2. METHOTREXATE [Suspect]
     Indication: RHEUMATOID ARTHRITIS
     Dates: start: 20090126
  3. MOBIC [Concomitant]
     Indication: RHEUMATOID ARTHRITIS
  4. MOHRUS [Concomitant]
     Indication: RHEUMATOID ARTHRITIS
  5. NEUROTROPIN [Concomitant]
     Indication: RHEUMATOID ARTHRITIS
     Dosage: AN EXTRACT FROM CUTANEOUS TISSUE OF RABBIT INOCULATED WITH VACCINIA VIRUS
  6. FOLIAMIN [Concomitant]
     Indication: PROPHYLAXIS
  7. ISCOTIN [Concomitant]
     Indication: ANTIBIOTIC PROPHYLAXIS
  8. PYDOXAL [Concomitant]
     Indication: PROPHYLAXIS
  9. CLARITH [Concomitant]
     Indication: PROPHYLAXIS
  10. SELBEX [Concomitant]
     Indication: PROPHYLAXIS
  11. DOGMATYL [Concomitant]

REACTIONS (2)
  - Interstitial lung disease [Recovered/Resolved]
  - Pneumonia cytomegaloviral [Unknown]
